FAERS Safety Report 7950102-8 (Version None)
Quarter: 2011Q4

REPORT INFORMATION
  Report Type: 
  Country: None (occurrence: None)
  Receive Date: 20111130
  Receipt Date: 20111123
  Transmission Date: 20120403
  Serious: Yes (Hospitalization, Other)
  Sender: FDA-Public Use
  Company Number: CA-ABBOTT-11P-028-0877222-00

PATIENT
  Sex: Male

DRUGS (2)
  1. OXYGEN THERAPY [Concomitant]
     Indication: LUNG DISORDER
  2. LUPRON DEPOT [Suspect]
     Indication: PROSTATE CANCER
     Route: 030
     Dates: start: 20061206

REACTIONS (5)
  - ABDOMINAL HERNIA [None]
  - LUNG DISORDER [None]
  - PULMONARY OEDEMA [None]
  - ARTHRALGIA [None]
  - OXYGEN SATURATION DECREASED [None]
